FAERS Safety Report 23913310 (Version 1)
Quarter: 2024Q2

REPORT INFORMATION
  Report Type: Spontaneous
  Country: CN (occurrence: CN)
  Receive Date: 20240529
  Receipt Date: 20240529
  Transmission Date: 20240716
  Serious: Yes (Hospitalization, Other)
  Sender: FDA-Public Use
  Company Number: CN-NOVITIUMPHARMA-2024CNNVP00941

PATIENT
  Age: 63 Year
  Sex: Male

DRUGS (6)
  1. PAROXETINE [Suspect]
     Active Substance: PAROXETINE
     Indication: Depression
     Dosage: GRADUALLY INCREASED DOSE
  2. CANDESARTAN CILEXETIL [Concomitant]
     Active Substance: CANDESARTAN CILEXETIL
     Indication: Hypertension
  3. ALPRAZOLAM [Concomitant]
     Active Substance: ALPRAZOLAM
     Indication: Depression
  4. BUPROPION [Concomitant]
     Active Substance: BUPROPION
     Indication: Depression
  5. BUPROPION [Concomitant]
     Active Substance: BUPROPION
     Dosage: DOSE INCREASED
  6. QUETIAPINE [Concomitant]
     Active Substance: QUETIAPINE
     Indication: Depression

REACTIONS (2)
  - Serotonin syndrome [Recovered/Resolved]
  - Intentional product misuse [Unknown]
